FAERS Safety Report 4707861-7 (Version None)
Quarter: 2005Q3

REPORT INFORMATION
  Report Type: 
  Country: None (occurrence: None)
  Receive Date: 20050705
  Receipt Date: 20050705
  Transmission Date: 20060218
  Serious: Yes (Death)
  Sender: FDA-Public Use
  Company Number: None

PATIENT
  Age: 33 Year
  Sex: Male

DRUGS (3)
  1. LEXAPRO [Suspect]
     Indication: ANXIETY
     Dosage: 1   DAILY    ORAL
     Route: 048
     Dates: start: 20031110, end: 20041006
  2. LEXAPRO [Suspect]
     Indication: DEPRESSION
     Dosage: 1   DAILY    ORAL
     Route: 048
     Dates: start: 20031110, end: 20041006
  3. XANAX [Suspect]
     Indication: INSOMNIA
     Dosage: 1-2    BEDTIME   ORAL
     Route: 048
     Dates: start: 20040806, end: 20050411

REACTIONS (2)
  - COMPLETED SUICIDE [None]
  - INJURY ASPHYXIATION [None]
